FAERS Safety Report 7234115-X (Version None)
Quarter: 2010Q4

REPORT INFORMATION
  Report Type: 
  Country: None (occurrence: None)
  Receive Date: 20101130
  Receipt Date: 20100927
  Transmission Date: 20110411
  Serious: Yes (Hospitalization, Other)
  Sender: FDA-Public Use
  Company Number: US200906004344

PATIENT
  Age: 45 Year
  Sex: Female
  Weight: 73.5 kg

DRUGS (14)
  1. BYETTA [Suspect]
     Indication: TYPE 2 DIABETES MELLITUS
     Dosage: 5 UG, 2/D ; 10 UG, 2/D ; 2.D
     Dates: start: 20051110, end: 20051209
  2. BYETTA [Suspect]
     Indication: TYPE 2 DIABETES MELLITUS
     Dosage: 5 UG, 2/D ; 10 UG, 2/D ; 2.D
     Dates: start: 20051209, end: 20060101
  3. BYETTA [Suspect]
     Indication: TYPE 2 DIABETES MELLITUS
     Dosage: 5 UG, 2/D ; 10 UG, 2/D ; 2.D
     Dates: start: 20070824, end: 20090114
  4. EXENATIDE 5MCG PEN, DISPOSABLE DEVICE (EXENATIDE PEN (5MCG)) [Concomitant]
  5. EXENATIDE 10MCG PEN, DISPOSABLE DEVICE (EXENATIDE PEN (10 MCG)) [Concomitant]
  6. GAS X (SIMETICONE) [Concomitant]
  7. TYLENOL /00020001/ (PARACETAMOL) [Concomitant]
  8. LISINOPRIL [Concomitant]
  9. NASACORT [Concomitant]
  10. IBUPROFEN [Concomitant]
  11. VICODIN [Concomitant]
  12. ALBUTEROL /00139501/ (SALBUTAMOL) [Concomitant]
  13. ASPIRIN [Concomitant]
  14. NIACIN AND INOSITOL (INOSITOL, NICOTINIC ACID) [Concomitant]

REACTIONS (3)
  - ABDOMINAL PAIN [None]
  - PANCREATITIS ACUTE [None]
  - RENAL INJURY [None]
